FAERS Safety Report 10903904 (Version 1)
Quarter: 2015Q1

REPORT INFORMATION
  Report Type: Spontaneous
  Country: US (occurrence: None)
  Receive Date: 20150306
  Receipt Date: 20150306
  Transmission Date: 20150721
  Serious: Yes (Other)
  Sender: FDA-Public Use
  Company Number: 2032714-2015-00001

PATIENT
  Sex: Female

DRUGS (2)
  1. FLUORIDEX TOOTHPASTE (1.1 % NAF WITH KNO3) [Suspect]
     Active Substance: SODIUM FLUORIDE
     Indication: PROPHYLAXIS
     Dosage: 1/8FL.OZFLX + 7/8OX H2O
  2. FLUORIDEX TOOTHPASTE (1.1 % NAF WITH KNO3) [Suspect]
     Active Substance: SODIUM FLUORIDE
     Indication: DENTAL CARIES
     Dosage: 1/8FL.OZFLX + 7/8OX H2O

REACTIONS (1)
  - Ulcer [None]
